FAERS Safety Report 11605343 (Version 5)
Quarter: 2016Q3

REPORT INFORMATION
  Report Type: Spontaneous
  Country: JP (occurrence: JP)
  Receive Date: 20151007
  Receipt Date: 20160830
  Transmission Date: 20161109
  Serious: Yes (Hospitalization, Other)
  Sender: FDA-Public Use
  Company Number: JP-009507513-1510JPN002045

PATIENT
  Age: 91 Year
  Sex: Male
  Weight: 55 kg

DRUGS (12)
  1. CUBICIN [Suspect]
     Active Substance: DAPTOMYCIN
     Indication: STAPHYLOCOCCAL INFECTION
     Dosage: 245 MG, ONCE A DAY: TOTAL DAILY DOSE: 245 MG
     Route: 042
     Dates: start: 20150714, end: 20150716
  2. MEROPENEM. [Concomitant]
     Active Substance: MEROPENEM
     Indication: PNEUMONIA ASPIRATION
     Dosage: 0.5 G, FOUR TIMES A DAY, TOTAL DAILY DOSE: 2 G
     Route: 041
     Dates: start: 20150807, end: 20150813
  3. TRAMCET [Concomitant]
     Active Substance: ACETAMINOPHEN\TRAMADOL
     Dosage: DAILY DOSAGE UNKNOWN
     Route: 048
     Dates: start: 20150707, end: 20150713
  4. CUBICIN [Suspect]
     Active Substance: DAPTOMYCIN
     Indication: OSTEOMYELITIS
     Dosage: 480 MG, ONCE A DAY: TOTAL DAILY DOSE: 480 MG
     Route: 042
     Dates: start: 20150819, end: 20150826
  5. VANCOMYCIN [Concomitant]
     Active Substance: VANCOMYCIN
     Indication: STAPHYLOCOCCAL INFECTION
     Dosage: 850 MG, QD
     Route: 065
     Dates: start: 20150704, end: 20150706
  6. ZYVOX [Suspect]
     Active Substance: LINEZOLID
     Indication: STAPHYLOCOCCAL INFECTION
     Dosage: 600 MG, TWICE A DAY, TOTAL DAILY DOSE: 1200 MG
     Route: 041
     Dates: start: 20150826, end: 20150924
  7. CLIDAMYCIN [Concomitant]
     Dosage: 600 MG, FOUR TIMES A DAY, TOTAL DAILY DOSE: 2400 MG
     Route: 041
     Dates: start: 20150814, end: 20150912
  8. CUBICIN [Suspect]
     Active Substance: DAPTOMYCIN
     Dosage: 480 MG, ONCE A DAY, TOTAL DAILY DOSE: 480 MG
     Route: 042
     Dates: start: 20150925, end: 20150928
  9. ZYVOX [Suspect]
     Active Substance: LINEZOLID
     Indication: OSTEOMYELITIS
     Dosage: 600 MG, TWICE A DAY: TOTAL DAILY DOSE: 1200 MG
     Route: 041
     Dates: start: 20150717, end: 20150818
  10. ZYVOX [Suspect]
     Active Substance: LINEZOLID
     Dosage: 600 MG, TWICE A DAY: TOTAL DAILY DOSE: 1200 MG
     Route: 041
     Dates: start: 20150707, end: 20150713
  11. CLIDAMYCIN [Concomitant]
     Indication: STAPHYLOCOCCAL INFECTION
     Dosage: 600 MG, FOUR TIMES A DAY, TOTAL DAILY DOSE: 2400 MG
     Route: 041
     Dates: start: 20150721, end: 20150806
  12. ERYTHROMYCIN. [Concomitant]
     Active Substance: ERYTHROMYCIN
     Indication: STAPHYLOCOCCAL INFECTION
     Dosage: DAILY DOSAGE UNKNOWN
     Route: 065
     Dates: start: 20150707, end: 20150707

REACTIONS (7)
  - Pancytopenia [Recovered/Resolved]
  - Blood creatine phosphokinase increased [Recovered/Resolved]
  - Overdose [Unknown]
  - Anaemia [Recovered/Resolved]
  - C-reactive protein increased [Unknown]
  - Drug ineffective [Unknown]
  - White blood cell count increased [Unknown]

NARRATIVE: CASE EVENT DATE: 201507
